FAERS Safety Report 18159765 (Version 1)
Quarter: 2020Q3

REPORT INFORMATION
  Report Type: Spontaneous
  Country: US (occurrence: US)
  Receive Date: 20200818
  Receipt Date: 20200818
  Transmission Date: 20201103
  Serious: No
  Sender: FDA-Public Use
  Company Number: US-BAUSCH-BL-2020-021858

PATIENT
  Age: 78 Year
  Sex: Male

DRUGS (1)
  1. ERYTHROMYCIN OPHTHALMIC OINTMENT USP 0.5% [Suspect]
     Active Substance: ERYTHROMYCIN
     Indication: EYE INFECTION
     Route: 047
     Dates: start: 20200727

REACTIONS (3)
  - Abdominal discomfort [Unknown]
  - Abdominal pain upper [Unknown]
  - Diarrhoea [Unknown]

NARRATIVE: CASE EVENT DATE: 20200728
